FAERS Safety Report 26211274 (Version 1)
Quarter: 2025Q4

REPORT INFORMATION
  Report Type: Spontaneous
  Country: IR (occurrence: IR)
  Receive Date: 20251230
  Receipt Date: 20251230
  Transmission Date: 20260117
  Serious: Yes (Life-Threatening, Hospitalization)
  Sender: AMGEN
  Company Number: IR-AMGEN-IRNSP2025255508

PATIENT
  Age: 49 Year
  Sex: Male

DRUGS (5)
  1. PROLIA [Suspect]
     Active Substance: DENOSUMAB
     Indication: Hypercalcaemia
     Dosage: 60 MILLIGRAM
     Route: 040
  2. SALINE [Concomitant]
     Active Substance: SODIUM CHLORIDE
     Indication: Hypercalcaemia
     Dosage: 4 LITER, QD
     Route: 040
  3. LASIX [Concomitant]
     Active Substance: FUROSEMIDE
     Indication: Hypercalcaemia
     Dosage: 20 MILLIGRAM
     Route: 040
  4. CALCITONIN [Concomitant]
     Active Substance: CALCITONIN
     Indication: Hypercalcaemia
  5. ZOLEDRONIC ACID [Concomitant]
     Active Substance: ZOLEDRONIC ACID
     Indication: Hypercalcaemia
     Dosage: 4 MILLIGRAM, (PER 100ML SOLUTION OF INFUSION)

REACTIONS (4)
  - Acute kidney injury [Recovered/Resolved]
  - Drug effective for unapproved indication [Unknown]
  - Off label use [Unknown]
  - Incorrect route of product administration [Unknown]
